FAERS Safety Report 7933583-5 (Version None)
Quarter: 2011Q4

REPORT INFORMATION
  Report Type: 
  Country: None (occurrence: None)
  Receive Date: 20111122
  Receipt Date: 20111116
  Transmission Date: 20120403
  Serious: Yes (Hospitalization)
  Sender: FDA-Public Use
  Company Number: GR-ELI_LILLY_AND_COMPANY-GR201111005448

PATIENT
  Age: 47 Year
  Sex: Male

DRUGS (4)
  1. VITAMIN B-12 [Concomitant]
  2. ALIMTA [Suspect]
     Indication: LUNG NEOPLASM MALIGNANT
     Dosage: 500 MG/M2, UNKNOWN
     Route: 042
  3. AVASTIN [Concomitant]
  4. FOLIC ACID [Concomitant]

REACTIONS (2)
  - PULMONARY FIBROSIS [None]
  - ABDOMINAL PAIN [None]
